FAERS Safety Report 17105089 (Version 12)
Quarter: 2024Q1

REPORT INFORMATION
  Report Type: Spontaneous
  Country: JP (occurrence: JP)
  Receive Date: 20191203
  Receipt Date: 20240219
  Transmission Date: 20240409
  Serious: Yes (Hospitalization, Other)
  Sender: FDA-Public Use
  Company Number: JP-BRISTOL-MYERS SQUIBB COMPANY-BMS-2019-114483

PATIENT
  Age: 74 Year
  Sex: Male
  Weight: 55.4 kg

DRUGS (9)
  1. NIVOLUMAB [Suspect]
     Active Substance: NIVOLUMAB
     Indication: Metastatic renal cell carcinoma
     Dosage: 240 MILLIGRAM
     Route: 041
     Dates: start: 20190918, end: 20191010
  2. IPILIMUMAB [Suspect]
     Active Substance: IPILIMUMAB
     Indication: Metastatic renal cell carcinoma
     Dosage: 60 MILLIGRAM
     Route: 041
     Dates: start: 20190918, end: 20191010
  3. CEFTRIAXONE [Suspect]
     Active Substance: CEFTRIAXONE\CEFTRIAXONE SODIUM
     Indication: Diverticulitis
     Dosage: UNK
     Dates: start: 20191019, end: 20191031
  4. RABEPRAZOLE SODIUM [Concomitant]
     Active Substance: RABEPRAZOLE SODIUM
     Indication: Product used for unknown indication
     Dosage: 10 MILLIGRAM, QD
     Route: 048
  5. ASPIRIN [Concomitant]
     Active Substance: ASPIRIN
     Indication: Product used for unknown indication
     Dosage: 100 MILLIGRAM, QD
     Route: 048
  6. FEBUXOSTAT [Concomitant]
     Active Substance: FEBUXOSTAT
     Indication: Product used for unknown indication
     Dosage: 10 MILLIGRAM, QD
     Route: 048
  7. TELMISARTAN [Concomitant]
     Active Substance: TELMISARTAN
     Indication: Product used for unknown indication
     Dosage: 20 MILLIGRAM, QD
     Route: 048
  8. NESINA [Concomitant]
     Active Substance: ALOGLIPTIN BENZOATE
     Indication: Product used for unknown indication
     Dosage: 12.5 MILLIGRAM, QD
  9. METGLUCO [Concomitant]
     Active Substance: METFORMIN HYDROCHLORIDE
     Indication: Product used for unknown indication
     Dosage: 250 MILLIGRAM, BID

REACTIONS (8)
  - Diverticulitis [Unknown]
  - Hyperthyroidism [Unknown]
  - Silent thyroiditis [Not Recovered/Not Resolved]
  - Hypopituitarism [Recovering/Resolving]
  - Feeding disorder [Unknown]
  - Adrenocortical insufficiency acute [Unknown]
  - Drug eruption [Unknown]
  - Rash papular [Unknown]

NARRATIVE: CASE EVENT DATE: 20191019
